FAERS Safety Report 8998465 (Version 1)
Quarter: 2013Q1

REPORT INFORMATION
  Report Type: Spontaneous
  Country: FR (occurrence: FR)
  Receive Date: 20130103
  Receipt Date: 20130103
  Transmission Date: 20140127
  Serious: Yes (Other)
  Sender: FDA-Public Use
  Company Number: FR-ROCHE-1176547

PATIENT
  Age: 66 Year
  Sex: Male

DRUGS (5)
  1. PEGASYS [Suspect]
     Indication: PRODUCT USED FOR UNKNOWN INDICATION
     Route: 058
     Dates: start: 201112, end: 20120103
  2. PEGASYS [Suspect]
     Route: 058
  3. HYDREA [Suspect]
     Indication: PRODUCT USED FOR UNKNOWN INDICATION
     Route: 048
     Dates: start: 1999, end: 201110
  4. HYDREA [Suspect]
     Route: 048
     Dates: start: 20120103
  5. KARDEGIC [Concomitant]
     Route: 065

REACTIONS (1)
  - Squamous cell carcinoma of skin [Not Recovered/Not Resolved]
